FAERS Safety Report 5788429-0 (Version None)
Quarter: 2008Q2

REPORT INFORMATION
  Report Type: 
  Country: None (occurrence: None)
  Receive Date: 20080623
  Receipt Date: 20080609
  Transmission Date: 20081010
  Serious: Yes (Other)
  Sender: FDA-Public Use
  Company Number: 2008S1005720

PATIENT
  Age: 50 Year
  Sex: Female
  Weight: 71.6683 kg

DRUGS (7)
  1. EZ PREP KIT [Suspect]
     Dosage: 45 ML;X1;PO
     Route: 048
     Dates: start: 20080608, end: 20080608
  2. EZ PREP KIT [Suspect]
     Indication: COLONOSCOPY
     Dosage: 45 ML;X1;PO
     Route: 048
     Dates: start: 20080608, end: 20080608
  3. ACTONEL [Concomitant]
  4. OMEGA 3 [Concomitant]
  5. FISH OIL [Concomitant]
  6. CALCIUM [Concomitant]
  7. ESTRADIOL [Concomitant]

REACTIONS (11)
  - BLOOD ALCOHOL INCREASED [None]
  - DRUG INEFFECTIVE [None]
  - DYSARTHRIA [None]
  - EYE SWELLING [None]
  - FEELING HOT [None]
  - HEADACHE [None]
  - INFREQUENT BOWEL MOVEMENTS [None]
  - ORAL DISCOMFORT [None]
  - PARAESTHESIA [None]
  - SENSATION OF HEAVINESS [None]
  - SWELLING FACE [None]
